FAERS Safety Report 7750289-6 (Version None)
Quarter: 2011Q3

REPORT INFORMATION
  Report Type: 
  Country: None (occurrence: None)
  Receive Date: 20110914
  Receipt Date: 20110901
  Transmission Date: 20111222
  Serious: Yes (Other)
  Sender: FDA-Public Use
  Company Number: US-ELI_LILLY_AND_COMPANY-US201109001328

PATIENT
  Sex: Female

DRUGS (6)
  1. TOPIRAMATE [Concomitant]
     Indication: MIGRAINE
     Dosage: UNK, QD
  2. PREDNISONE [Concomitant]
  3. ASPIRIN [Concomitant]
  4. BOTOX [Concomitant]
     Indication: MIGRAINE
  5. TOPROL-XL [Concomitant]
  6. FORTEO [Suspect]
     Indication: OSTEOPOROSIS
     Dosage: 20 UG, QD

REACTIONS (12)
  - NEURALGIA [None]
  - ATRIAL FIBRILLATION [None]
  - NERVE INJURY [None]
  - MOOD SWINGS [None]
  - TREMOR [None]
  - ASTHENIA [None]
  - CONVULSION [None]
  - WEIGHT INCREASED [None]
  - GASTROOESOPHAGEAL REFLUX DISEASE [None]
  - INJECTION SITE HAEMATOMA [None]
  - IRRITABLE BOWEL SYNDROME [None]
  - VISION BLURRED [None]
